FAERS Safety Report 17406610 (Version 1)
Quarter: 2020Q1

REPORT INFORMATION
  Report Type: Spontaneous
  Country: US (occurrence: US)
  Receive Date: 20200212
  Receipt Date: 20200212
  Transmission Date: 20200409
  Serious: No
  Sender: FDA-Public Use
  Company Number: US-ALLERGAN-1934420US

PATIENT
  Age: 55 Year
  Sex: Male

DRUGS (5)
  1. VIIBRYD [Suspect]
     Active Substance: VILAZODONE HYDROCHLORIDE
     Indication: DEPRESSION
     Dosage: 20 MG, QD
  2. DEXTROAMPHETAMINE. [Concomitant]
     Active Substance: DEXTROAMPHETAMINE
     Indication: ATTENTION DEFICIT/HYPERACTIVITY DISORDER
  3. VIIBRYD [Suspect]
     Active Substance: VILAZODONE HYDROCHLORIDE
     Dosage: 10 MG, QD
     Dates: start: 201907
  4. NAPROXEN. [Concomitant]
     Active Substance: NAPROXEN
     Indication: SHOULDER OPERATION
  5. ASPIRIN. [Concomitant]
     Active Substance: ASPIRIN

REACTIONS (7)
  - Memory impairment [Not Recovered/Not Resolved]
  - Irritability [Recovered/Resolved]
  - Asthenia [Recovered/Resolved]
  - Mood swings [Not Recovered/Not Resolved]
  - Feeling abnormal [Recovered/Resolved]
  - Agitation [Not Recovered/Not Resolved]
  - Abnormal behaviour [Not Recovered/Not Resolved]

NARRATIVE: CASE EVENT DATE: 2019
